FAERS Safety Report 17612430 (Version 1)
Quarter: 2020Q2

REPORT INFORMATION
  Report Type: Report from Study
  Country: US (occurrence: US)
  Receive Date: 20200401
  Receipt Date: 20200401
  Transmission Date: 20200713
  Serious: No
  Sender: FDA-Public Use
  Company Number: NVSC2020US084895

PATIENT
  Age: 34 Year
  Sex: Female

DRUGS (1)
  1. COSENTYX [Suspect]
     Active Substance: SECUKINUMAB
     Indication: ANKYLOSING SPONDYLITIS
     Dosage: 300 MG, QW
     Route: 058
     Dates: start: 20200316

REACTIONS (6)
  - Swollen tongue [Unknown]
  - Hypersensitivity [Unknown]
  - Pruritus [Unknown]
  - Feeling hot [Unknown]
  - Rash [Unknown]
  - Pharyngeal swelling [Unknown]

NARRATIVE: CASE EVENT DATE: 20200318
